FAERS Safety Report 6495661-X (Version None)
Quarter: 2009Q4

REPORT INFORMATION
  Report Type: 
  Country: None (occurrence: None)
  Receive Date: 20091214
  Receipt Date: 20090807
  Transmission Date: 20100525
  Serious: No
  Sender: FDA-Public Use
  Company Number: US-BRISTOL-MYERS SQUIBB COMPANY-14721294

PATIENT
  Age: 55 Year
  Sex: Female

DRUGS (5)
  1. ABILIFY [Suspect]
     Indication: DEPRESSION
     Route: 048
     Dates: start: 20090707, end: 20090728
  2. ABILIFY [Suspect]
     Indication: MOOD SWINGS
     Route: 048
     Dates: start: 20090707, end: 20090728
  3. WELLBUTRIN [Concomitant]
  4. CYMBALTA [Concomitant]
  5. AMITRIPTYLINE [Concomitant]

REACTIONS (1)
  - ATRIAL FIBRILLATION [None]
